FAERS Safety Report 5594145-0 (Version None)
Quarter: 2008Q1

REPORT INFORMATION
  Report Type: 
  Country: None (occurrence: None)
  Receive Date: 20080115
  Receipt Date: 20080104
  Transmission Date: 20080703
  Serious: Yes (Death, Life-Threatening, Hospitalization)
  Sender: FDA-Public Use
  Company Number: GXKR2008US00521

PATIENT
  Age: 30 Year
  Sex: Female

DRUGS (3)
  1. AMANTADINE (NGX) (AMANTADINE) TABLET, 100MG [Suspect]
     Dosage: 100MG, BID,ORAL; INTENTIONAL OVERDOSE
     Route: 048
  2. ZIPRASIDONE (ZIPRASIDONE) TABLET, 60MG [Suspect]
     Dosage: 60 MG, BID, ORAL INTENTIONAL OVERDOSE
     Route: 048
  3. IBUPROFEN [Concomitant]

REACTIONS (19)
  - COMPLETED SUICIDE [None]
  - DEEP VEIN THROMBOSIS [None]
  - DISSEMINATED INTRAVASCULAR COAGULATION [None]
  - DRUG INTERACTION [None]
  - ECCHYMOSIS [None]
  - ESCHERICHIA BACTERAEMIA [None]
  - FALL [None]
  - HYPOKALAEMIA [None]
  - LETHARGY [None]
  - LOSS OF CONSCIOUSNESS [None]
  - MULTIPLE DRUG OVERDOSE INTENTIONAL [None]
  - PULMONARY EMBOLISM [None]
  - SEPSIS [None]
  - SINUS BRADYCARDIA [None]
  - TACHYARRHYTHMIA [None]
  - TORSADE DE POINTES [None]
  - UROSEPSIS [None]
  - VENTRICULAR EXTRASYSTOLES [None]
  - VENTRICULAR TACHYCARDIA [None]
